FAERS Safety Report 9407247 (Version 2)
Quarter: 2013Q4

REPORT INFORMATION
  Report Type: Report from Study
  Country: CA (occurrence: CA)
  Receive Date: 20130718
  Receipt Date: 20131213
  Transmission Date: 20140711
  Serious: Yes (Hospitalization)
  Sender: FDA-Public Use
  Company Number: CA-TEVA-419728USA

PATIENT
  Age: 77 Year
  Sex: Male
  Weight: 78 kg

DRUGS (11)
  1. BENDAMUSTINE [Suspect]
     Indication: CHRONIC LYMPHOCYTIC LEUKAEMIA
     Dosage: UNKNOWN/D
     Route: 042
     Dates: start: 20130516
  2. BENDAMUSTINE [Suspect]
     Dosage: REGIMEN #2
     Route: 042
     Dates: start: 20130613
  3. RITUXIMAB [Suspect]
     Indication: CHRONIC LYMPHOCYTIC LEUKAEMIA
     Route: 042
     Dates: start: 20130515
  4. IBRUTINIB/PLACEBO [Suspect]
     Indication: CHRONIC LYMPHOCYTIC LEUKAEMIA
     Route: 048
     Dates: start: 20130516
  5. IBRUTINIB/PLACEBO [Suspect]
     Route: 048
     Dates: start: 20130621
  6. AMLODIPINE [Concomitant]
  7. AMOOXIL [Concomitant]
  8. CONVERSYL [Concomitant]
  9. METFORMIN [Concomitant]
  10. ROSUVASTATIN [Concomitant]
  11. TERAZOSIN [Concomitant]

REACTIONS (1)
  - Asthenia [Recovered/Resolved]
